FAERS Safety Report 8909737 (Version 2)
Quarter: 2013Q1

REPORT INFORMATION
  Report Type: Spontaneous
  Country: VE (occurrence: VE)
  Receive Date: 20121115
  Receipt Date: 20130211
  Transmission Date: 20140127
  Serious: Yes (Life-Threatening, Hospitalization)
  Sender: FDA-Public Use
  Company Number: VE-ELI_LILLY_AND_COMPANY-VE201211002953

PATIENT
  Sex: Female

DRUGS (8)
  1. HUMALOG 25% LISPRO, 75% NPL [Suspect]
     Indication: GESTATIONAL DIABETES
     Dosage: 8 U, EACH MORNING
     Route: 064
     Dates: start: 20120126
  2. HUMALOG 25% LISPRO, 75% NPL [Suspect]
     Indication: GESTATIONAL DIABETES
     Dosage: 8 U, EACH MORNING
     Route: 064
     Dates: start: 20120126
  3. HUMALOG 25% LISPRO, 75% NPL [Suspect]
     Dosage: 5 U, EACH EVENING
     Route: 064
     Dates: start: 20120126
  4. HUMALOG 25% LISPRO, 75% NPL [Suspect]
     Dosage: 5 U, EACH EVENING
     Route: 064
     Dates: start: 20120126
  5. ALDOMET [Concomitant]
     Indication: HYPERTENSION
     Dosage: 25 MG, UNKNOWN
  6. ALDOMET [Concomitant]
     Indication: HYPERTENSION
     Dosage: 25 MG, UNKNOWN
  7. ADALAT [Concomitant]
     Indication: HYPERTENSION
  8. ADALAT [Concomitant]
     Indication: HYPERTENSION

REACTIONS (2)
  - Premature baby [Recovered/Resolved]
  - Foetal exposure during pregnancy [Recovered/Resolved]
